FAERS Safety Report 15516995 (Version 1)
Quarter: 2018Q4

REPORT INFORMATION
  Report Type: Report from Study
  Country: DE (occurrence: DE)
  Receive Date: 20181017
  Receipt Date: 20181017
  Transmission Date: 20190205
  Serious: Yes (Other)
  Sender: FDA-Public Use
  Company Number: DE-AUROBINDO-AUR-APL-2018-049475

PATIENT
  Age: 53 Year
  Sex: Female

DRUGS (4)
  1. 5-FLUOROURACIL                     /00098801/ [Suspect]
     Active Substance: FLUOROURACIL
     Indication: PANCREATIC CARCINOMA METASTATIC
     Dosage: 2400 MILLIGRAM/SQ. METER, FOR EVERY 2 WEEKS FOR 6 MONTHS
     Route: 065
  2. OXALIPLATIN CONCENTRATE FOR SOLUTION FOR INFUSION [Suspect]
     Active Substance: OXALIPLATIN
     Indication: PANCREATIC CARCINOMA METASTATIC
     Dosage: 85 MILLIGRAM/SQ. METER, FOR EVERY 2 WEEKS FOR 6 MONTHS
     Route: 042
  3. IRINOTECAN [Suspect]
     Active Substance: IRINOTECAN
     Indication: PANCREATIC CARCINOMA METASTATIC
     Dosage: 180 MILLIGRAM/SQ. METER, FOR EVERY 2 WEEKS FOR 6 MONTHS
     Route: 065
  4. LEUCOVORIN                         /00566701/ [Suspect]
     Active Substance: LEUCOVORIN
     Indication: PANCREATIC CARCINOMA METASTATIC
     Dosage: 400 MILLIGRAM/SQ. METER, FOR EVERY 2 WEEKS FOR 6 MONTHS
     Route: 065

REACTIONS (8)
  - Axonal neuropathy [Unknown]
  - General physical health deterioration [Unknown]
  - Polyneuropathy [Unknown]
  - Hypoaesthesia [Unknown]
  - Neurotoxicity [Unknown]
  - Weight decreased [Unknown]
  - Neuropathy peripheral [Unknown]
  - Allodynia [Unknown]
